FAERS Safety Report 8522668-0 (Version None)
Quarter: 2012Q3

REPORT INFORMATION
  Report Type: 
  Country: None (occurrence: None)
  Receive Date: 20120719
  Receipt Date: 20120716
  Transmission Date: 20120928
  Serious: Yes (Death)
  Sender: FDA-Public Use
  Company Number: US-GLAXOSMITHKLINE-A0876851A

PATIENT
  Age: 53 Year
  Sex: Male

DRUGS (1)
  1. AVANDARYL [Suspect]
     Indication: TYPE 2 DIABETES MELLITUS
     Route: 048
     Dates: start: 20070401, end: 20080318

REACTIONS (1)
  - MYOCARDIAL INFARCTION [None]
